FAERS Safety Report 5938213-X (Version None)
Quarter: 2008Q4

REPORT INFORMATION
  Report Type: 
  Country: None (occurrence: None)
  Receive Date: 20081031
  Receipt Date: 20081023
  Transmission Date: 20090506
  Serious: Yes (Other)
  Sender: FDA-Public Use
  Company Number: CA-AMGEN-US315317

PATIENT
  Age: 61 Year
  Sex: Male

DRUGS (7)
  1. ARANESP [Suspect]
     Indication: DIALYSIS
     Route: 042
  2. EPREX [Suspect]
     Route: 058
  3. ADALAT [Concomitant]
  4. CALCIUM [Concomitant]
  5. HEPATITIS B VACCINE [Concomitant]
  6. IRON [Concomitant]
     Route: 042
  7. MONOCOR [Concomitant]

REACTIONS (20)
  - ABDOMINAL PAIN [None]
  - APLASIA PURE RED CELL [None]
  - ARTHRALGIA [None]
  - BRONCHITIS [None]
  - CELLULITIS [None]
  - CYTOMEGALOVIRUS INFECTION [None]
  - DIARRHOEA [None]
  - DRUG SPECIFIC ANTIBODY PRESENT [None]
  - FLATULENCE [None]
  - HEPATITIS A [None]
  - HERPES ZOSTER [None]
  - INFLUENZA LIKE ILLNESS [None]
  - MUSCLE SPASMS [None]
  - MUSCULOSKELETAL PAIN [None]
  - POSTOPERATIVE WOUND INFECTION [None]
  - PROCEDURAL PAIN [None]
  - PRURITUS [None]
  - RED BLOOD CELL ABNORMALITY [None]
  - THERAPEUTIC RESPONSE DECREASED [None]
  - VIRAL INFECTION [None]
